FAERS Safety Report 23037175 (Version 1)
Quarter: 2023Q4

REPORT INFORMATION
  Report Type: Spontaneous
  Country: GB (occurrence: GB)
  Receive Date: 20231006
  Receipt Date: 20231006
  Transmission Date: 20240109
  Serious: Yes (Other)
  Sender: FDA-Public Use
  Company Number: None

PATIENT
  Age: 67 Year
  Sex: Male
  Weight: 86 kg

DRUGS (20)
  1. IBUPROFEN [Suspect]
     Active Substance: IBUPROFEN
     Indication: Product used for unknown indication
     Dosage: 200 MILLIGRAM, QD (APPLY 3-4 TIMES), TABLET
     Route: 065
     Dates: start: 20230324
  2. ATORVASTATIN [Concomitant]
     Active Substance: ATORVASTATIN
     Indication: Product used for unknown indication
     Dosage: 2 DOSAGE FORM, QD
     Route: 065
     Dates: start: 20230223
  3. BECLOMETHASONE DIPROPIONATE [Concomitant]
     Active Substance: BECLOMETHASONE DIPROPIONATE
     Indication: Product used for unknown indication
     Dosage: 1 DOSAGE FORM (SPRAY INTO EACH NOSTRIL TWICE)
     Route: 065
     Dates: start: 20190909
  4. CETIRIZINE [Concomitant]
     Active Substance: CETIRIZINE HYDROCHLORIDE
     Indication: Product used for unknown indication
     Dosage: 10 MILLILITER, QD
     Route: 065
     Dates: start: 20230606
  5. CLOPIDOGREL [Concomitant]
     Active Substance: CLOPIDOGREL BISULFATE
     Indication: Product used for unknown indication
     Dosage: 1 DOSAGE FORM, QD (CAN BE CRUSHED AND MIXED W)
     Route: 065
     Dates: start: 20230223
  6. Co-Amoxiclav (Amoxycillin, Potassium Clavulanate) [Concomitant]
     Indication: Product used for unknown indication
     Dosage: 30 MILLILITER, QD
     Route: 065
     Dates: start: 20230512, end: 20230519
  7. DAPAGLIFLOZIN [Concomitant]
     Active Substance: DAPAGLIFLOZIN
     Indication: Product used for unknown indication
     Dosage: 1 DOSAGE FORM, QD
     Route: 065
     Dates: start: 20200806, end: 20230630
  8. Dermol (Benzalkonium Chloride, Liquid Paraffin, Isopropyl Myristate, C [Concomitant]
     Indication: Product used for unknown indication
     Dosage: UNK (USE AS DIRECTED)
     Route: 065
     Dates: start: 20220620
  9. DOMPERIDONE [Concomitant]
     Active Substance: DOMPERIDONE
     Indication: Product used for unknown indication
     Dosage: 3 DOSAGE FORM, QD
     Route: 065
     Dates: start: 20230510, end: 20230517
  10. DOXYCYCLINE [Concomitant]
     Active Substance: DOXYCYCLINE
     Indication: Product used for unknown indication
     Dosage: 1 DOSAGE FORM, QD (TWO NOW)
     Route: 065
     Dates: start: 20230525, end: 20230530
  11. Instillagel (Chlorhexidine Gluconate, Chlorhexidine Digluconate Soluti [Concomitant]
     Indication: Product used for unknown indication
     Dosage: UNK (USE AS DIRECTED)
     Route: 065
     Dates: start: 20230424
  12. LANSOPRAZOLE [Concomitant]
     Active Substance: LANSOPRAZOLE
     Indication: Product used for unknown indication
     Dosage: 1 DOSAGE FORM, QD
     Route: 065
     Dates: start: 20230223
  13. LINAGLIPTIN [Concomitant]
     Active Substance: LINAGLIPTIN
     Indication: Product used for unknown indication
     Dosage: 1 DOSAGE FORM, QD
     Route: 065
     Dates: start: 20230208
  14. POLYETHYLENE GLYCOLS [Concomitant]
     Active Substance: POLYETHYLENE GLYCOLS
     Indication: Product used for unknown indication
     Dosage: 1 DOSAGE FORM (DISSOLVE THE CONTENTS OF SACHET IN WATER AN...)
     Route: 065
     Dates: start: 20221209
  15. Madopar (Levodopa, Benserazide Hydrochloride) [Concomitant]
     Indication: Product used for unknown indication
     Dosage: 3 DOSAGE FORM (AT 7.30AM, 1....)
     Route: 065
     Dates: start: 20230208
  16. NIZORAL [Concomitant]
     Active Substance: KETOCONAZOLE
     Indication: Product used for unknown indication
     Dosage: UNK (USE AS DIRECTED)
     Route: 065
     Dates: start: 20170920
  17. ACETAMINOPHEN [Concomitant]
     Active Substance: ACETAMINOPHEN
     Indication: Product used for unknown indication
     Dosage: 20 MILLILITER, PRN (AS NECESSARY) UP TO FOUR TIMES A DAY
     Route: 065
     Dates: start: 20230223
  18. Acidex (Sodium Alginate, Calcium Carbonate, Sodium Bicarbonate, Potass [Concomitant]
     Indication: Product used for unknown indication
     Dosage: UNK, PRN AS NECESSARY (TAKE 10-20ML AFTER FOOD AND AT BEDTIME)
     Route: 065
     Dates: start: 20220117
  19. SENNOSIDES [Concomitant]
     Active Substance: SENNOSIDES
     Indication: Product used for unknown indication
     Dosage: 10 MILLILITER, HS (SPOON AT NIGHT)
     Route: 065
     Dates: start: 20230223
  20. Surgical Spirit Bp (Methyl Salicylate, Industrial Methylated Spirit) [Concomitant]
     Indication: Product used for unknown indication
     Dosage: UNK (USE AS DIRECTED)
     Route: 065
     Dates: start: 20230621, end: 20230622

REACTIONS (1)
  - Rectal haemorrhage [Recovering/Resolving]
